FAERS Safety Report 10087270 (Version 3)
Quarter: 2014Q2

REPORT INFORMATION
  Report Type: Spontaneous
  Country: US (occurrence: US)
  Receive Date: 20140418
  Receipt Date: 20140613
  Transmission Date: 20141212
  Serious: Yes (Other)
  Sender: FDA-Public Use
  Company Number: US-TEVA-476586USA

PATIENT
  Age: 23 Year
  Sex: Female
  Weight: 82.17 kg

DRUGS (3)
  1. PARAGARD 380A [Suspect]
     Indication: CONTRACEPTION
     Route: 015
     Dates: start: 20140130, end: 20140327
  2. PARAGARD 380A [Suspect]
     Route: 015
     Dates: start: 20140327
  3. ALAVERT [Concomitant]
     Indication: HYPERSENSITIVITY

REACTIONS (2)
  - Device dislocation [Recovered/Resolved]
  - Medical device complication [Recovered/Resolved]
